FAERS Safety Report 5097849-1 (Version None)
Quarter: 2006Q3

REPORT INFORMATION
  Report Type: 
  Country: None (occurrence: None)
  Receive Date: 20060905
  Receipt Date: 20060821
  Transmission Date: 20061208
  Serious: Yes (Life-Threatening)
  Sender: FDA-Public Use
  Company Number: 2006-184

PATIENT
  Age: 95 Year
  Sex: Female
  Weight: 80 kg

DRUGS (5)
  1. CITALOPRAM HYDROBROMIDE [Suspect]
     Dosage: 20MG, ORAL
     Route: 048
  2. FENTANYL [Concomitant]
  3. OMEPRAZOLE [Concomitant]
  4. TEMAZEPAM [Concomitant]
  5. LEVOTHYROXINE SODIUM [Concomitant]

REACTIONS (1)
  - BLOOD SODIUM DECREASED [None]
